FAERS Safety Report 14366842 (Version 1)
Quarter: 2018Q1

REPORT INFORMATION
  Report Type: Spontaneous
  Country: GB (occurrence: GB)
  Receive Date: 20180109
  Receipt Date: 20180109
  Transmission Date: 20180509
  Serious: Yes (Disabling, Other)
  Sender: FDA-Public Use
  Company Number: GB-PFIZER INC-2018008103

PATIENT
  Age: 45 Year
  Sex: Female

DRUGS (10)
  1. CARBAMAZEPINE. [Concomitant]
     Active Substance: CARBAMAZEPINE
     Dosage: 200 MG, 3X/DAY
  2. PHENYTOIN. [Suspect]
     Active Substance: PHENYTOIN
     Indication: TEMPORAL LOBE EPILEPSY
     Dosage: UNK
     Dates: start: 1972
  3. PHENYTOIN. [Suspect]
     Active Substance: PHENYTOIN
     Dosage: 100 MG, 3X/DAY
     Dates: start: 1980
  4. PHENOBARBITONE [Concomitant]
     Active Substance: PHENOBARBITAL
     Indication: TEMPORAL LOBE EPILEPSY
     Dosage: UNK
     Dates: start: 1972, end: 1974
  5. PRIMIDONE. [Suspect]
     Active Substance: PRIMIDONE
     Dosage: 250 MG, 3X/DAY
     Dates: start: 1980
  6. PHENYTOIN. [Suspect]
     Active Substance: PHENYTOIN
     Dosage: 250 MG, 1X/DAY (DOSE MAINTAINED)
  7. PHENYTOIN. [Suspect]
     Active Substance: PHENYTOIN
     Dosage: UNK (WITHDRAWN IN STEPS OF 75 MG OVER THREE WEEKS)
  8. PRIMIDONE. [Suspect]
     Active Substance: PRIMIDONE
     Dosage: 250 MG, 1X/DAY (DOSE MAINTAINED)
  9. PRIMIDONE. [Suspect]
     Active Substance: PRIMIDONE
     Dosage: 25 MG, DAILY (DECREASED IN STEPS OF 75 MG OVER THREE WEEKS)
  10. PRIMIDONE. [Suspect]
     Active Substance: PRIMIDONE
     Indication: TEMPORAL LOBE EPILEPSY
     Dosage: UNK
     Dates: start: 1974

REACTIONS (7)
  - Nystagmus [Recovered/Resolved]
  - Major depression [Recovered/Resolved]
  - General physical condition abnormal [Recovered/Resolved]
  - Psychiatric symptom [Recovered/Resolved]
  - Hirsutism [Recovered/Resolved]
  - Gingival hypertrophy [Recovered/Resolved]
  - Paraesthesia [Recovered/Resolved]
